FAERS Safety Report 19408738 (Version 2)
Quarter: 2021Q3

REPORT INFORMATION
  Report Type: Spontaneous
  Country: DE (occurrence: DE)
  Receive Date: 20210613
  Receipt Date: 20210731
  Transmission Date: 20211014
  Serious: Yes (Other)
  Sender: FDA-Public Use
  Company Number: NVSC2021DE127199

PATIENT
  Age: 77 Year
  Sex: Female
  Weight: 66 kg

DRUGS (38)
  1. STANGYL [Concomitant]
     Active Substance: TRIMIPRAMINE MALEATE
     Indication: DEPRESSION
     Dosage: 100 MG, QD (50 MILLIGRAM, BID)
     Route: 048
  2. MAGNETRANS FORTE [Concomitant]
     Active Substance: MAGNESIUM OXIDE
     Indication: HYPOMAGNESAEMIA
     Dosage: 300 MG,QD (150 MILLIGRAM, BID)
     Route: 048
     Dates: start: 20201118
  3. CEFPODOXIME [Concomitant]
     Active Substance: CEFPODOXIME
     Indication: C-REACTIVE PROTEIN INCREASED
     Dosage: 400 MG,QD (200 MILLIGRAM, BID)
     Route: 048
     Dates: start: 20201112, end: 20201117
  4. MINOCYCLINE [Concomitant]
     Active Substance: MINOCYCLINE HYDROCHLORIDE
     Indication: PRODUCT USED FOR UNKNOWN INDICATION
     Dosage: 100 MG,QD (50 MILLIGRAM, BID)
     Route: 048
     Dates: start: 20200902
  5. VERGENTAN [Concomitant]
     Active Substance: ALIZAPRIDE HYDROCHLORIDE
     Indication: NAUSEA
     Dosage: 50MG (50 MILLIGRAM, AS NECESSARY)
     Route: 048
     Dates: start: 20200910
  6. AMLODIPIN [Concomitant]
     Active Substance: AMLODIPINE BESYLATE
     Indication: HYPERTENSION
     Dosage: 2.5 MG, QD
     Route: 048
     Dates: start: 2020, end: 20210118
  7. CALCIGEN D3 [Concomitant]
     Indication: HYPOCALCAEMIA
     Dosage: 2500 MG,QD (1250 MILLIGRAM, BID)
     Route: 048
     Dates: start: 20201123
  8. MOVICOL [Concomitant]
     Active Substance: POLYETHYLENE GLYCOL 3350\POTASSIUM CHLORIDE\SODIUM BICARBONATE\SODIUM CHLORIDE
     Indication: PRODUCT USED FOR UNKNOWN INDICATION
     Dosage: 13 G (AS NECESSARY)
     Route: 048
     Dates: start: 20210120
  9. OXALIPLATIN. [Suspect]
     Active Substance: OXALIPLATIN
     Indication: COLORECTAL CANCER METASTATIC
     Dosage: 115 MG (115 MILLIGRAM)
     Route: 065
     Dates: start: 20200902
  10. JONOSTERIL [Concomitant]
     Indication: BLOOD CREATININE INCREASED
     Dosage: 1 UNK, QD (500?1500 MILLILITER, QD)
     Route: 042
     Dates: start: 20201104
  11. LOPERAMID [Concomitant]
     Active Substance: LOPERAMIDE
     Indication: DIARRHOEA
     Dosage: 1.86MG (1.86 MILLIGRAM, AS NECESSARY)
     Route: 048
     Dates: start: 20200903
  12. POTASSIUM [Concomitant]
     Active Substance: POTASSIUM
     Indication: HYPOKALAEMIA
     Dosage: UNK (9999 UNK)
     Route: 065
     Dates: start: 20210113, end: 20210118
  13. METOPROLOL. [Concomitant]
     Active Substance: METOPROLOL
     Indication: HYPERTENSION
     Dosage: 50 MG,QD (50 MILLIGRAM, QD)
     Route: 048
     Dates: start: 2020
  14. FORTIMEL COMPACT [Concomitant]
     Indication: WEIGHT DECREASED
     Dosage: 125 ML (AS NECESSARY)
     Route: 048
     Dates: start: 20210120
  15. FOLINIC ACID [Suspect]
     Active Substance: LEUCOVORIN
     Dosage: 640 MG (640 MILLIGRAM)
     Route: 065
     Dates: start: 20210324
  16. SIMVASTATIN. [Concomitant]
     Active Substance: SIMVASTATIN
     Indication: METABOLIC DISORDER
     Dosage: 20 MG,QD (20 MILLIGRAM, QD)
     Route: 048
  17. UNACID [Concomitant]
     Indication: INFECTION
     Dosage: 3 G, QD
     Route: 042
     Dates: start: 20210113, end: 20210115
  18. PANTOZOL [Concomitant]
     Active Substance: PANTOPRAZOLE SODIUM
     Indication: CHRONIC GASTRITIS
     Dosage: 40 MG, QD
     Route: 048
     Dates: start: 20200910
  19. OXALIPLATIN. [Suspect]
     Active Substance: OXALIPLATIN
     Dosage: 144 MG (144 MILLIGRAM)
     Route: 065
     Dates: start: 20200916
  20. FOLINIC ACID [Suspect]
     Active Substance: LEUCOVORIN
     Indication: COLORECTAL CANCER METASTATIC
     Dosage: 680 MG (680 MILLIGRAM)
     Route: 065
     Dates: start: 20200902
  21. PREDNISOLON [Concomitant]
     Active Substance: PREDNISOLONE
     Indication: BRONCHOSPASM
     Dosage: 200 MG, QD
     Route: 042
     Dates: start: 20201028, end: 20201028
  22. ATROPIN [Concomitant]
     Active Substance: ATROPINE
     Indication: PRODUCT USED FOR UNKNOWN INDICATION
     Dosage: 0.25 MG (CYCLICAL)
     Route: 058
     Dates: start: 20201209
  23. KALIUM [Concomitant]
     Active Substance: POTASSIUM CHLORIDE
     Indication: HYPOKALAEMIA
     Dosage: 20 ML (AS NECESSARY)
     Route: 042
     Dates: start: 20201112, end: 20201118
  24. DEXAMETHASON [Concomitant]
     Active Substance: DEXAMETHASONE
     Indication: PRODUCT USED FOR UNKNOWN INDICATION
     Dosage: 8 MG (CYCLICAL)
     Route: 042
     Dates: start: 20200902
  25. FLUOROURACIL. [Suspect]
     Active Substance: FLUOROURACIL
     Dosage: 3840 MG (3840 MILLIGRAM)
     Route: 042
     Dates: start: 20210324
  26. CALCIUM [Concomitant]
     Active Substance: CALCIUM
     Indication: HYPOCALCAEMIA
     Dosage: 100 MG,QD (100 MILLIGRAM, QD)
     Route: 048
     Dates: start: 20201118
  27. BRICANYL [Concomitant]
     Active Substance: TERBUTALINE SULFATE
     Indication: BRONCHOSPASM
     Dosage: 0.5 MG,QD (0.5 MILLIGRAM, QD)
     Route: 058
     Dates: start: 20201028, end: 20201028
  28. IRINOTECAN [Concomitant]
     Active Substance: IRINOTECAN
     Indication: PRODUCT USED FOR UNKNOWN INDICATION
     Dosage: UNK (288?300 MILLIGRAM, CYCLICAL)
     Route: 042
     Dates: start: 20201209
  29. FLUOROURACIL. [Suspect]
     Active Substance: FLUOROURACIL
     Indication: COLORECTAL CANCER METASTATIC
     Dosage: 4080 MG (4080 MILLIGRAM)
     Route: 042
     Dates: start: 20200902
  30. VECTIBIX [Suspect]
     Active Substance: PANITUMUMAB
     Indication: COLORECTAL CANCER METASTATIC
     Dosage: 400 MG (400 MILLIGRAM)
     Route: 042
     Dates: start: 20200902
  31. VECTIBIX [Suspect]
     Active Substance: PANITUMUMAB
     Dosage: 360 MG (360 MILLIGRAM)
     Route: 042
     Dates: start: 20210324
  32. ONDANSETRON [Concomitant]
     Active Substance: ONDANSETRON
     Indication: NAUSEA
     Dosage: 8 MG,QD (8 MILLIGRAM, QD)
     Route: 042
     Dates: start: 20201111
  33. ALPHA LIPON ARISTO [Concomitant]
     Active Substance: THIOCTIC ACID
     Indication: TREMOR
     Dosage: 600 MG
     Route: 048
     Dates: start: 20210210
  34. RIOPAN [Concomitant]
     Indication: ABDOMINAL PAIN UPPER
     Dosage: 10 ML (AS NECESSARY)
     Route: 048
     Dates: start: 20201014
  35. MCP [Concomitant]
     Active Substance: METOCLOPRAMIDE HYDROCHLORIDE
     Indication: NAUSEA
     Dosage: 10 MG (AS NECESSARY)
     Route: 048
     Dates: start: 20200902
  36. AKYNZEO [Concomitant]
     Active Substance: NETUPITANT\PALONOSETRON HYDROCHLORIDE
     Indication: PRODUCT USED FOR UNKNOWN INDICATION
     Dosage: 300 MG, CYCLIC
     Route: 048
     Dates: start: 20200902
  37. NOVAMIN [Concomitant]
     Indication: PAIN
     Dosage: 2000 MG, QD
     Route: 048
     Dates: start: 2020
  38. LAXOBERAL [Concomitant]
     Active Substance: SODIUM PICOSULFATE
     Indication: CONSTIPATION
     Dosage: UNK (15 DROP, AS NECESSARY)
     Route: 048
     Dates: start: 20210120

REACTIONS (1)
  - Cachexia [Recovering/Resolving]

NARRATIVE: CASE EVENT DATE: 20210505
